FAERS Safety Report 18333006 (Version 1)
Quarter: 2020Q3

REPORT INFORMATION
  Report Type: Report from Study
  Country: None (occurrence: GB)
  Receive Date: 20200930
  Receipt Date: 20200930
  Transmission Date: 20201103
  Serious: Yes (Congenital Anomaly, Other)
  Sender: FDA-Public Use
  Company Number: GB-BAUSCH-BL-2020-027815

PATIENT

DRUGS (3)
  1. METHADONE [Interacting]
     Active Substance: METHADONE HYDROCHLORIDE
     Indication: PRODUCT USED FOR UNKNOWN INDICATION
     Route: 064
  2. DIAZEPAM. [Suspect]
     Active Substance: DIAZEPAM
     Indication: PRODUCT USED FOR UNKNOWN INDICATION
     Route: 064
  3. BUTANE [Interacting]
     Active Substance: BUTANE
     Indication: PRODUCT USED FOR UNKNOWN INDICATION
     Route: 064

REACTIONS (8)
  - Developmental delay [Unknown]
  - Delayed visual maturation [Unknown]
  - Nystagmus [Unknown]
  - Foetal exposure during pregnancy [Unknown]
  - Posture abnormal [Unknown]
  - Drug withdrawal syndrome neonatal [Unknown]
  - Strabismus [Unknown]
  - Drug interaction [Unknown]
